FAERS Safety Report 21333459 (Version 1)
Quarter: 2022Q3

REPORT INFORMATION
  Report Type: Spontaneous
  Country: US (occurrence: US)
  Receive Date: 20220914
  Receipt Date: 20220914
  Transmission Date: 20221027
  Serious: No
  Sender: FDA-Public Use
  Company Number: US-ABBVIE-22K-163-4534584-00

PATIENT
  Sex: Female

DRUGS (2)
  1. SKYRIZI [Suspect]
     Active Substance: RISANKIZUMAB-RZAA
     Indication: Psoriatic arthropathy
     Route: 058
  2. ENBREL [Suspect]
     Active Substance: ETANERCEPT
     Indication: Product used for unknown indication
     Route: 065

REACTIONS (10)
  - Oropharyngeal pain [Unknown]
  - Throat irritation [Recovered/Resolved]
  - Rhinorrhoea [Not Recovered/Not Resolved]
  - Taste disorder [Recovered/Resolved]
  - Cough [Recovered/Resolved]
  - Rash [Unknown]
  - Paranasal sinus discomfort [Not Recovered/Not Resolved]
  - Urticaria [Unknown]
  - Injection site urticaria [Recovered/Resolved]
  - Unevaluable event [Unknown]

NARRATIVE: CASE EVENT DATE: 20220101
